FAERS Safety Report 8226172-9 (Version None)
Quarter: 2012Q1

REPORT INFORMATION
  Report Type: 
  Country: None (occurrence: None)
  Receive Date: 20120307
  Receipt Date: 20091019
  Transmission Date: 20120608
  Serious: No
  Sender: FDA-Public Use
  Company Number: PHEH2009US13841

PATIENT
  Sex: Male

DRUGS (1)
  1. AFINITOR [Suspect]

REACTIONS (6)
  - OCULAR HYPERAEMIA [None]
  - OCULAR DISCOMFORT [None]
  - DRY EYE [None]
  - EYE ALLERGY [None]
  - LACRIMATION INCREASED [None]
  - DRUG INEFFECTIVE [None]
